FAERS Safety Report 18201143 (Version 15)
Quarter: 2025Q3

REPORT INFORMATION
  Report Type: Report from Study
  Country: US (occurrence: US)
  Receive Date: 20200827
  Receipt Date: 20250918
  Transmission Date: 20251021
  Serious: Yes (Other)
  Sender: TAKEDA
  Company Number: US-SHIRE-US202027611

PATIENT
  Age: 66 Year
  Sex: Female
  Weight: 67 kg

DRUGS (30)
  1. HUMAN IMMUNOGLOBULIN G [Suspect]
     Active Substance: HUMAN IMMUNOGLOBULIN G
     Indication: Immunodeficiency common variable
     Dosage: 22 GRAM, Q2WEEKS
     Dates: start: 20180108
  2. HUMAN IMMUNOGLOBULIN G [Suspect]
     Active Substance: HUMAN IMMUNOGLOBULIN G
     Dosage: 22 GRAM, Q2WEEKS
     Dates: start: 20181211
  3. HUMAN IMMUNOGLOBULIN G [Suspect]
     Active Substance: HUMAN IMMUNOGLOBULIN G
     Dosage: 25 GRAM, Q2WEEKS
  4. INFLUENZA VIRUS VACCINE [Suspect]
     Active Substance: INFLUENZA VIRUS VACCINE
     Indication: Product used for unknown indication
  5. ACETAMINOPHEN [Concomitant]
     Active Substance: ACETAMINOPHEN
  6. PREDNISONE [Concomitant]
     Active Substance: PREDNISONE
  7. ZYRTEC [Concomitant]
     Active Substance: CETIRIZINE HYDROCHLORIDE
  8. SINGULAIR [Concomitant]
     Active Substance: MONTELUKAST SODIUM
  9. BREO ELLIPTA [Concomitant]
     Active Substance: FLUTICASONE FUROATE\VILANTEROL TRIFENATATE
  10. AMLODIPINE BESYLATE [Concomitant]
     Active Substance: AMLODIPINE BESYLATE
  11. AZELASTINE HYDROCHLORIDE [Concomitant]
     Active Substance: AZELASTINE HYDROCHLORIDE
  12. CLINDAMYCIN [Concomitant]
     Active Substance: CLINDAMYCIN
  13. ASPIRIN [Concomitant]
     Active Substance: ASPIRIN
  14. EPIPEN [Concomitant]
     Active Substance: EPINEPHRINE
  15. UNSPECIFIED INGREDIENT [Concomitant]
     Active Substance: UNSPECIFIED INGREDIENT
  16. LIDOCAINE [Concomitant]
     Active Substance: LIDOCAINE
  17. FLUTICASONE PROPIONATE [Concomitant]
     Active Substance: FLUTICASONE PROPIONATE
  18. PROAIR HFA [Concomitant]
     Active Substance: ALBUTEROL SULFATE
  19. XARELTO [Concomitant]
     Active Substance: RIVAROXABAN
  20. DIPHENHYDRAMINE HYDROCHLORIDE [Concomitant]
     Active Substance: DIPHENHYDRAMINE HYDROCHLORIDE
  21. ADVAIR HFA [Concomitant]
     Active Substance: FLUTICASONE PROPIONATE\SALMETEROL XINAFOATE
  22. DIPHENHYDRAMINE [Concomitant]
     Active Substance: DIPHENHYDRAMINE
  23. FUROSEMIDE [Concomitant]
     Active Substance: FUROSEMIDE
  24. POTASSIUM CHLORIDE [Concomitant]
     Active Substance: POTASSIUM CHLORIDE
  25. RECLAST [Concomitant]
     Active Substance: ZOLEDRONIC ACID
  26. EPINEPHRINE [Concomitant]
     Active Substance: EPINEPHRINE
  27. TESSALON [Concomitant]
     Active Substance: BENZONATATE
  28. POTASSIUM [Concomitant]
     Active Substance: POTASSIUM
  29. IBUPROFEN [Concomitant]
     Active Substance: IBUPROFEN
  30. ASPIRIN [Concomitant]
     Active Substance: ASPIRIN

REACTIONS (18)
  - Nephrolithiasis [Unknown]
  - Gastroenteritis viral [Unknown]
  - Cholelithiasis [Unknown]
  - Ear disorder [Unknown]
  - Bronchitis [Not Recovered/Not Resolved]
  - Weight decreased [Unknown]
  - Infusion related reaction [Unknown]
  - Ear infection [Not Recovered/Not Resolved]
  - Illness [Unknown]
  - Drug ineffective [Unknown]
  - Viral infection [Unknown]
  - Product dose omission issue [Unknown]
  - Infusion site discharge [Unknown]
  - Gastrointestinal disorder [Unknown]
  - Seasonal allergy [Unknown]
  - Sinusitis [Not Recovered/Not Resolved]
  - Asthma [Unknown]
  - Influenza [Not Recovered/Not Resolved]

NARRATIVE: CASE EVENT DATE: 20230328
